FAERS Safety Report 4869746-5 (Version None)
Quarter: 2005Q4

REPORT INFORMATION
  Report Type: 
  Country: None (occurrence: None)
  Receive Date: 20051223
  Receipt Date: 20051205
  Transmission Date: 20060501
  Serious: Yes (Other)
  Sender: FDA-Public Use
  Company Number: USA0508106124

PATIENT
  Age: 68 Year
  Sex: Female
  Weight: 46 kg

DRUGS (7)
  1. FORTEO [Suspect]
     Indication: OSTEOPOROSIS
     Dosage: 20 UG, DAILY (1/D), SUBCUTANEOUS
     Route: 058
     Dates: start: 20030227, end: 20050201
  2. FORTEO PEN, 250MCG/ML(3ML) (FORTEO PEN 250,CG/ML (3ML)) [Concomitant]
  3. PEN, DISPOSABLE [Concomitant]
  4. CITRACAL (CALCIUM CITRATE) [Concomitant]
  5. MVI (VITAMINS NOS) [Concomitant]
  6. WELLBUTRIN [Concomitant]
  7. EFFEXOR [Concomitant]

REACTIONS (4)
  - CATARACT [None]
  - KERATOPATHY [None]
  - MACULAR DEGENERATION [None]
  - MACULAR HOLE [None]
